FAERS Safety Report 18426724 (Version 1)
Quarter: 2020Q4

REPORT INFORMATION
  Report Type: Spontaneous
  Country: US (occurrence: US)
  Receive Date: 20201026
  Receipt Date: 20201026
  Transmission Date: 20210114
  Serious: Yes (Other)
  Sender: FDA-Public Use
  Company Number: None

PATIENT
  Age: 35 Year
  Sex: Female
  Weight: 76.95 kg

DRUGS (4)
  1. LEVOTHYROXINE 0.075 MG [Concomitant]
     Dates: start: 20160719
  2. INVEGA [Suspect]
     Active Substance: PALIPERIDONE
     Indication: SCHIZOAFFECTIVE DISORDER
     Route: 048
     Dates: start: 20200415, end: 20201022
  3. TRIAMCINOLONE ACETONIDE TOPICAL [Concomitant]
     Active Substance: TRIAMCINOLONE ACETONIDE
     Dates: start: 20200710
  4. DAILY MVI [Concomitant]
     Dates: start: 20200811

REACTIONS (1)
  - Amenorrhoea [None]

NARRATIVE: CASE EVENT DATE: 20200811
